FAERS Safety Report 8003159-2 (Version None)
Quarter: 2011Q4

REPORT INFORMATION
  Report Type: 
  Country: None (occurrence: None)
  Receive Date: 20111222
  Receipt Date: 20111213
  Transmission Date: 20120403
  Serious: Yes (Other)
  Sender: FDA-Public Use
  Company Number: PHHY2011BR109504

PATIENT
  Age: 65 Year
  Sex: Male

DRUGS (1)
  1. DIOVAN HCT [Suspect]
     Indication: HYPERTENSION
     Dosage: 0.5 DF (160/12.5), EACH OTHER DAY

REACTIONS (3)
  - DYSPNOEA [None]
  - CHEST PAIN [None]
  - OESOPHAGEAL ACHALASIA [None]
